FAERS Safety Report 6709273-3 (Version None)
Quarter: 2010Q2

REPORT INFORMATION
  Report Type: 
  Country: None (occurrence: None)
  Receive Date: 20100504
  Receipt Date: 20100422
  Transmission Date: 20101027
  Serious: Yes (Hospitalization, Other)
  Sender: FDA-Public Use
  Company Number: US-SANOFI-AVENTIS-2010SA000669

PATIENT
  Age: 54 Year
  Sex: Female

DRUGS (66)
  1. LEVAQUIN [Suspect]
     Indication: BACTERIAL INFECTION
     Route: 048
     Dates: start: 19970922, end: 19971001
  2. LEVAQUIN [Suspect]
     Indication: SINUSITIS
     Route: 048
     Dates: start: 19970922, end: 19971001
  3. LEVAQUIN [Suspect]
     Route: 048
     Dates: start: 19970922, end: 19971001
  4. LEVAQUIN [Suspect]
     Route: 048
     Dates: start: 19971124, end: 19971130
  5. LEVAQUIN [Suspect]
     Route: 048
     Dates: start: 19971124, end: 19971130
  6. LEVAQUIN [Suspect]
     Route: 048
     Dates: start: 19971124, end: 19971130
  7. LEVAQUIN [Suspect]
     Route: 048
     Dates: start: 20040123, end: 20040205
  8. LEVAQUIN [Suspect]
     Route: 048
     Dates: start: 20040123, end: 20040205
  9. LEVAQUIN [Suspect]
     Route: 048
     Dates: start: 20040123, end: 20040205
  10. LEVAQUIN [Suspect]
     Route: 048
     Dates: start: 20040206, end: 20040219
  11. LEVAQUIN [Suspect]
     Route: 048
     Dates: start: 20040206, end: 20040219
  12. LEVAQUIN [Suspect]
     Route: 048
     Dates: start: 20040206, end: 20040219
  13. LEVAQUIN [Suspect]
     Route: 048
     Dates: start: 20040407, end: 20040416
  14. LEVAQUIN [Suspect]
     Route: 048
     Dates: start: 20040407, end: 20040416
  15. LEVAQUIN [Suspect]
     Route: 048
     Dates: start: 20040407, end: 20040416
  16. LEVAQUIN [Suspect]
     Route: 048
     Dates: start: 20040503, end: 20040512
  17. LEVAQUIN [Suspect]
     Route: 048
     Dates: start: 20040503, end: 20040512
  18. LEVAQUIN [Suspect]
     Route: 048
     Dates: start: 20040503, end: 20040512
  19. LEVAQUIN [Suspect]
     Route: 048
     Dates: start: 20060725, end: 20060803
  20. LEVAQUIN [Suspect]
     Route: 048
     Dates: start: 20060725, end: 20060803
  21. LEVAQUIN [Suspect]
     Route: 048
     Dates: start: 20060725, end: 20060803
  22. LEVAQUIN [Suspect]
     Route: 048
     Dates: start: 20061128, end: 20061204
  23. LEVAQUIN [Suspect]
     Route: 048
     Dates: start: 20061128, end: 20061204
  24. LEVAQUIN [Suspect]
     Route: 048
     Dates: start: 20061128, end: 20061204
  25. LEVAQUIN [Suspect]
     Route: 048
     Dates: start: 20070209, end: 20070222
  26. LEVAQUIN [Suspect]
     Route: 048
     Dates: start: 20070209, end: 20070222
  27. LEVAQUIN [Suspect]
     Route: 048
     Dates: start: 20070209, end: 20070222
  28. LEVAQUIN [Suspect]
     Route: 048
     Dates: start: 20070423, end: 20070502
  29. LEVAQUIN [Suspect]
     Route: 048
     Dates: start: 20070423, end: 20070502
  30. LEVAQUIN [Suspect]
     Route: 048
     Dates: start: 20070423, end: 20070502
  31. LEVAQUIN [Suspect]
     Route: 048
     Dates: start: 20070502, end: 20070508
  32. LEVAQUIN [Suspect]
     Route: 048
     Dates: start: 20070502, end: 20070508
  33. LEVAQUIN [Suspect]
     Route: 048
     Dates: start: 20070502, end: 20070508
  34. LEVAQUIN [Suspect]
     Route: 048
     Dates: start: 20070821, end: 20070825
  35. LEVAQUIN [Suspect]
     Route: 048
     Dates: start: 20070821, end: 20070825
  36. LEVAQUIN [Suspect]
     Route: 048
     Dates: start: 20070821, end: 20070825
  37. LEVAQUIN [Suspect]
     Route: 048
     Dates: start: 20070824, end: 20070828
  38. LEVAQUIN [Suspect]
     Route: 048
     Dates: start: 20070824, end: 20070828
  39. LEVAQUIN [Suspect]
     Route: 048
     Dates: start: 20070824, end: 20070828
  40. LEVAQUIN [Suspect]
     Route: 048
     Dates: start: 20080117, end: 20080126
  41. LEVAQUIN [Suspect]
     Route: 048
     Dates: start: 20080117, end: 20080126
  42. LEVAQUIN [Suspect]
     Route: 048
     Dates: start: 20080117, end: 20080126
  43. LEVAQUIN [Suspect]
     Route: 048
     Dates: start: 20080611, end: 20080615
  44. LEVAQUIN [Suspect]
     Route: 048
     Dates: start: 20080611, end: 20080615
  45. LEVAQUIN [Suspect]
     Route: 048
     Dates: start: 20080611, end: 20080615
  46. LEVAQUIN [Suspect]
     Route: 048
     Dates: start: 20081020, end: 20081024
  47. LEVAQUIN [Suspect]
     Route: 048
     Dates: start: 20081020, end: 20081024
  48. LEVAQUIN [Suspect]
     Route: 048
     Dates: start: 20081020, end: 20081024
  49. LEVAQUIN [Suspect]
     Route: 048
     Dates: start: 20081104, end: 20081117
  50. LEVAQUIN [Suspect]
     Route: 048
     Dates: start: 20081104, end: 20081117
  51. LEVAQUIN [Suspect]
     Route: 048
     Dates: start: 20081104, end: 20081117
  52. LEVAQUIN [Suspect]
     Route: 048
     Dates: start: 20081204, end: 20081208
  53. LEVAQUIN [Suspect]
     Route: 048
     Dates: start: 20081204, end: 20081208
  54. LEVAQUIN [Suspect]
     Route: 048
     Dates: start: 20081204, end: 20081208
  55. LEVAQUIN [Suspect]
     Route: 048
     Dates: start: 20090109, end: 20090118
  56. LEVAQUIN [Suspect]
     Route: 048
     Dates: start: 20090109, end: 20090118
  57. LEVAQUIN [Suspect]
     Route: 048
     Dates: start: 20090109, end: 20090118
  58. NASACORT [Suspect]
     Indication: HYPERSENSITIVITY
     Route: 045
     Dates: start: 19970101, end: 19990101
  59. NASACORT [Suspect]
     Dates: start: 20050101, end: 20070101
  60. METHYLPREDNISOLONE [Suspect]
     Indication: INFLAMMATION
     Dates: start: 20020101
  61. METHYLPREDNISOLONE [Suspect]
     Dates: start: 20050101, end: 20080101
  62. PREDNISONE TAB [Suspect]
     Indication: ANTIINFLAMMATORY THERAPY
     Dates: start: 20040101, end: 20080101
  63. PULMICORT [Suspect]
     Indication: ASTHMA
     Dates: start: 20030101
  64. PULMICORT [Suspect]
     Dates: start: 20070101, end: 20080101
  65. CIPROFLOXACIN [Suspect]
     Dates: start: 20071001
  66. CIPROFLOXACIN [Suspect]
     Dates: start: 20080815

REACTIONS (4)
  - ANXIETY [None]
  - DEPRESSION [None]
  - STRESS [None]
  - TENDON DISORDER [None]
